FAERS Safety Report 24110061 (Version 1)
Quarter: 2024Q3

REPORT INFORMATION
  Report Type: Report from Study
  Country: US (occurrence: US)
  Receive Date: 20240718
  Receipt Date: 20240718
  Transmission Date: 20241016
  Serious: Yes (Hospitalization)
  Sender: ROCHE
  Company Number: US-ROCHE-3510689

PATIENT
  Age: 71 Year
  Sex: Male
  Weight: 70.31 kg

DRUGS (4)
  1. ERIVEDGE [Suspect]
     Active Substance: VISMODEGIB
     Indication: Basal cell carcinoma
     Dosage: TAKE 1 CAPSULE BY MOUTH DAILY
     Route: 048
  2. ERIVEDGE [Suspect]
     Active Substance: VISMODEGIB
     Indication: Basal cell carcinoma
  3. STOOL SOFTENER (DOCUSATE) [Concomitant]
     Active Substance: DOCUSATE
     Indication: Constipation
  4. ASPIRIN [Concomitant]
     Active Substance: ASPIRIN
     Indication: Cerebrovascular accident
     Route: 048

REACTIONS (12)
  - Abdominal pain [Recovered/Resolved]
  - Constipation [Recovered/Resolved]
  - Thrombosis [Recovering/Resolving]
  - Peripheral swelling [Unknown]
  - Weight decreased [Recovered/Resolved]
  - Appetite disorder [Recovered/Resolved]
  - Ageusia [Recovered/Resolved]
  - Asthenia [Recovering/Resolving]
  - Hypoaesthesia [Recovering/Resolving]
  - Gastrointestinal oedema [Not Recovered/Not Resolved]
  - Hypertension [Recovered/Resolved]
  - Gastrooesophageal reflux disease [Unknown]

NARRATIVE: CASE EVENT DATE: 20240501
